FAERS Safety Report 22988986 (Version 2)
Quarter: 2024Q2

REPORT INFORMATION
  Report Type: Report from Study
  Country: US (occurrence: US)
  Receive Date: 20230927
  Receipt Date: 20240410
  Transmission Date: 20240716
  Serious: Yes (Hospitalization, Other)
  Sender: FDA-Public Use
  Company Number: US-ABBVIE-5421166

PATIENT
  Age: 73 Year
  Sex: Female
  Weight: 59.42 kg

DRUGS (1)
  1. CREON [Suspect]
     Active Substance: PANCRELIPASE AMYLASE\PANCRELIPASE LIPASE\PANCRELIPASE PROTEASE
     Indication: Pancreatic failure
     Dosage: FORM STRENGTH: 36000 UNIT?CREON TWO CAPSULES WITH MEALS THREE TIMES A DAY AND?ONE CAPSULE WITH SN...
     Route: 048
     Dates: start: 202101

REACTIONS (5)
  - Seizure [Recovered/Resolved]
  - Urinary tract infection [Recovered/Resolved]
  - Body height decreased [Not Recovered/Not Resolved]
  - Hyponatraemia [Recovering/Resolving]
  - Diabetes mellitus [Unknown]

NARRATIVE: CASE EVENT DATE: 20230801
